FAERS Safety Report 22065913 (Version 1)
Quarter: 2023Q1

REPORT INFORMATION
  Report Type: Spontaneous
  Country: SA (occurrence: SA)
  Receive Date: 20230306
  Receipt Date: 20230306
  Transmission Date: 20230418
  Serious: Yes (Hospitalization, Other)
  Sender: FDA-Public Use
  Company Number: SA-AstraZeneca-2023A048372

PATIENT
  Age: 71 Year
  Sex: Female

DRUGS (1)
  1. TRASTUZUMAB DERUXTECAN [Suspect]
     Active Substance: TRASTUZUMAB DERUXTECAN
     Indication: HER2 gene amplification
     Dosage: 4.4 MG/KG, ONCE EVERY 3 WK
     Route: 042

REACTIONS (2)
  - Gastric perforation [Unknown]
  - Gastritis [Unknown]
